FAERS Safety Report 9657767 (Version 2)
Quarter: 2013Q4

REPORT INFORMATION
  Report Type: Spontaneous
  Country: DE (occurrence: None)
  Receive Date: 20131020
  Receipt Date: 20131113
  Transmission Date: 20140711
  Serious: Yes (Hospitalization)
  Sender: FDA-Public Use
  Company Number: DE-JNJFOC-20131011162

PATIENT
  Age: 63 Year
  Sex: Male

DRUGS (7)
  1. DACOGEN (DECITABINE) LYOPHILIZED POWDER [Suspect]
     Indication: ACUTE MYELOID LEUKAEMIA
     Route: 042
     Dates: start: 20130919
  2. DEFERASIROX [Concomitant]
  3. CYKLOKAPRON (TRANEXAMIC ACID) [Concomitant]
  4. LYRICA (PREGABALIN) [Concomitant]
  5. SAROTEN (AMITRIPTYLINE HYDROCHLORIDE) [Concomitant]
  6. PANTOPRAZOLE [Concomitant]
  7. LINEZOLID [Concomitant]

REACTIONS (5)
  - Erythema [None]
  - Pancytopenia [None]
  - C-reactive protein increased [None]
  - Papule [None]
  - Haemorrhage [None]
